FAERS Safety Report 20872240 (Version 1)
Quarter: 2022Q2

REPORT INFORMATION
  Report Type: Spontaneous
  Country: US (occurrence: US)
  Receive Date: 20220525
  Receipt Date: 20220525
  Transmission Date: 20220721
  Serious: Yes (Hospitalization, Other)
  Sender: FDA-Public Use
  Company Number: US-Nexus Pharma-000071

PATIENT
  Age: 73 Year
  Sex: Female

DRUGS (6)
  1. LEVETIRACETAM [Suspect]
     Active Substance: LEVETIRACETAM
     Indication: Seizure
     Dosage: WAS RESTARTED ON HER HOME DOSE OF LEVETIRACETAM 1000 MG TWICE DAILY.
  2. DILTIAZEM [Concomitant]
     Active Substance: DILTIAZEM
  3. FAMOTIDINE [Concomitant]
     Active Substance: FAMOTIDINE
  4. DABIGATRAN [Concomitant]
     Active Substance: DABIGATRAN
  5. AMPICILLIN AND SULBACTAM [Concomitant]
     Active Substance: AMPICILLIN SODIUM\SULBACTAM SODIUM
  6. FUROSEMIDE [Concomitant]
     Active Substance: FUROSEMIDE

REACTIONS (2)
  - Hypokalaemia [Recovered/Resolved]
  - Hypomagnesaemia [Recovered/Resolved]
